FAERS Safety Report 18718827 (Version 2)
Quarter: 2021Q2

REPORT INFORMATION
  Report Type: Spontaneous
  Country: US (occurrence: US)
  Receive Date: 20210108
  Receipt Date: 20210421
  Transmission Date: 20210717
  Serious: No
  Sender: FDA-Public Use
  Company Number: US-JNJFOC-20201254144

PATIENT
  Age: 52 Year
  Sex: Male
  Weight: 78.09 kg

DRUGS (1)
  1. MENS ROGAINE EXTRA STRENGTH [Suspect]
     Active Substance: MINOXIDIL
     Indication: ALOPECIA
     Dosage: HALF A CUP FULL TWICE DAILY.?LAST ADMINISTRATION DATE 23?DEC?2020
     Route: 061
     Dates: start: 20201101, end: 2020

REACTIONS (6)
  - Erythema [Recovered/Resolved]
  - Application site pruritus [Recovered/Resolved]
  - Swelling face [Recovered/Resolved]
  - Pruritus [Recovered/Resolved]
  - Application site swelling [Recovered/Resolved]
  - Ear swelling [Recovered/Resolved]

NARRATIVE: CASE EVENT DATE: 20201123
